FAERS Safety Report 5570880-5 (Version None)
Quarter: 2007Q4

REPORT INFORMATION
  Report Type: 
  Country: None (occurrence: None)
  Receive Date: 20071219
  Receipt Date: 20071207
  Transmission Date: 20080405
  Serious: Yes (Other)
  Sender: FDA-Public Use
  Company Number: 2007BI025960

PATIENT
  Age: 31 Year
  Sex: Female
  Weight: 54.4316 kg

DRUGS (4)
  1. NATALIZUMAB [Suspect]
     Indication: MULTIPLE SCLEROSIS
     Dosage: 300 MG;QM;IV
     Route: 030
     Dates: start: 20060101
  2. ZOLOFT [Concomitant]
  3. NAMENDA [Concomitant]
  4. LAMICTAL [Concomitant]

REACTIONS (1)
  - CONVULSION [None]
